FAERS Safety Report 17011742 (Version 1)
Quarter: 2019Q4

REPORT INFORMATION
  Report Type: Spontaneous
  Country: FR (occurrence: FR)
  Receive Date: 20191108
  Receipt Date: 20191108
  Transmission Date: 20200122
  Serious: Yes (Hospitalization)
  Sender: FDA-Public Use
  Company Number: FR-MYLANLABS-2019M1106446

PATIENT
  Age: 87 Year
  Sex: Male
  Weight: 78 kg

DRUGS (14)
  1. MIDAZOLAM [Suspect]
     Active Substance: MIDAZOLAM HYDROCHLORIDE
     Indication: ANAESTHESIA
     Dosage: 1 MILLIGRAM
     Route: 065
     Dates: start: 20190404, end: 20190404
  2. BISOPROLOL                         /00802602/ [Concomitant]
     Active Substance: BISOPROLOL
     Dosage: 1.5 MILLIGRAM, QD
     Route: 048
  3. MINISINTROM [Concomitant]
     Active Substance: ACENOCOUMAROL
     Dosage: INVASIVE DOSAGE
     Route: 048
  4. PARACETAMOL [Concomitant]
     Active Substance: ACETAMINOPHEN
     Dosage: INVASIVE DOSAGE
     Route: 048
  5. UN-ALFA [Concomitant]
     Active Substance: ALFACALCIDOL
     Dosage: INVASIVE DOSAGE
     Route: 048
  6. BUPIVACAINE                        /00330102/ [Suspect]
     Active Substance: BUPIVACAINE
     Indication: ANAESTHESIA
     Dosage: INVASIVE DOSAGE
     Route: 008
     Dates: start: 20190404, end: 20190404
  7. CEFAZOLINE                         /00288501/ [Suspect]
     Active Substance: CEFAZOLIN
     Indication: ANTIBIOTIC PROPHYLAXIS
     Dosage: 2 GRAM
     Route: 042
     Dates: start: 20190404, end: 20190404
  8. OMEPRAZOLE. [Concomitant]
     Active Substance: OMEPRAZOLE
     Dosage: 10 MILLIGRAM, QD
     Route: 048
     Dates: end: 20190404
  9. FUROSEMIDE. [Concomitant]
     Active Substance: FUROSEMIDE
     Dosage: 60 MILLIGRAM, QD
     Route: 048
  10. CALCIDIA [Concomitant]
     Active Substance: CALCIUM CARBONATE
     Dosage: INVASIVE DOSAGE
     Route: 048
  11. MACROGOL 600 DISTEARATE [Concomitant]
     Active Substance: POLYETHYLENE GLYCOLS
     Dosage: INVASIVE DOSAGE
     Route: 048
  12. BROMAZEPAM [Concomitant]
     Active Substance: BROMAZEPAM
     Dosage: INVASIVE DOSAGE
     Route: 048
  13. ALLOPURINOL. [Concomitant]
     Active Substance: ALLOPURINOL
     Dosage: 100 MILLIGRAM, QD
     Route: 048
     Dates: end: 20190413
  14. UVEDOSE [Concomitant]
     Active Substance: CHOLECALCIFEROL
     Dosage: INVASIVE DOSAGE
     Route: 048

REACTIONS (3)
  - Urticaria [Recovered/Resolved]
  - Acute kidney injury [Recovered/Resolved]
  - Hypersensitivity [Recovered/Resolved]

NARRATIVE: CASE EVENT DATE: 20190404
